FAERS Safety Report 4348626-8 (Version None)
Quarter: 2004Q2

REPORT INFORMATION
  Report Type: 
  Country: None (occurrence: None)
  Receive Date: 20040423
  Receipt Date: 20040405
  Transmission Date: 20050107
  Serious: Yes (Hospitalization)
  Sender: FDA-Public Use
  Company Number: VISP-NO-0310S-0294

PATIENT
  Age: 36 Year
  Sex: Female
  Weight: 71 kg

DRUGS (4)
  1. VISIPAQUE [Suspect]
     Indication: DRUG USE FOR UNKNOWN INDICATION
     Dosage: 130 ML, SINGLE DOSE, I.V.
     Route: 042
     Dates: start: 20030915, end: 20030915
  2. VISIPAQUE [Suspect]
  3. VISIPAQUE [Suspect]
  4. VISIPAQUE [Suspect]

REACTIONS (2)
  - DYSPHAGIA [None]
  - RASH GENERALISED [None]
